FAERS Safety Report 7073900-4 (Version None)
Quarter: 2010Q4

REPORT INFORMATION
  Report Type: 
  Country: None (occurrence: None)
  Receive Date: 20101029
  Receipt Date: 20101021
  Transmission Date: 20110411
  Serious: Yes (Hospitalization)
  Sender: FDA-Public Use
  Company Number: AT-B.I. PHARMACEUTICALS,INC./RIDGEFIELD-2010-AP-00526AP

PATIENT
  Sex: Female
  Weight: 80 kg

DRUGS (12)
  1. PRADAXA [Suspect]
     Indication: THROMBOSIS PROPHYLAXIS
     Dosage: 220 MG
     Route: 048
     Dates: start: 20101008, end: 20101009
  2. LOVENOX [Concomitant]
     Indication: THROMBOSIS PROPHYLAXIS
     Dosage: 40 MG
     Route: 058
     Dates: start: 20101006, end: 20101007
  3. DALACIN [Concomitant]
     Indication: INFECTION PROPHYLAXIS
     Dosage: 1800 MG
     Route: 042
     Dates: start: 20101007, end: 20101010
  4. PANTOLOC [Concomitant]
     Indication: GASTRITIS PROPHYLAXIS
     Dosage: 40 MG
     Route: 048
     Dates: start: 20101006
  5. MIRTABENE [Concomitant]
     Indication: PROPHYLAXIS
     Dosage: 15 MG
     Route: 048
  6. GABAPENTIN [Concomitant]
     Indication: PROPHYLAXIS
     Dosage: 300 MG
     Route: 048
  7. PARKEMED [Concomitant]
     Indication: PAIN PROPHYLAXIS
     Dosage: 1500 MG
     Route: 048
     Dates: start: 20101009
  8. NOVALGIN [Concomitant]
     Indication: PAIN PROPHYLAXIS
     Dosage: 3 G
     Route: 042
     Dates: start: 20101007, end: 20101009
  9. TRAMADOL HCL [Concomitant]
     Indication: PAIN PROPHYLAXIS
     Dosage: 300 MG
     Route: 042
     Dates: start: 20101007, end: 20101009
  10. PSYCHOPAX [Concomitant]
     Indication: EMOTIONAL DISORDER
     Dosage: 10 ANZ
     Route: 048
     Dates: start: 20101007, end: 20101007
  11. DICLOFENAC SODIUM [Concomitant]
     Indication: PAIN PROPHYLAXIS
     Dosage: 75 MG
     Route: 042
     Dates: start: 20101007, end: 20101008
  12. DORMILUM [Concomitant]
     Indication: PROPHYLAXIS
     Dosage: 3.75 MG
     Route: 048
     Dates: start: 20101007, end: 20101007

REACTIONS (1)
  - MYOCARDIAL INFARCTION [None]
